FAERS Safety Report 23986378 (Version 1)
Quarter: 2024Q2

REPORT INFORMATION
  Report Type: Spontaneous
  Country: SK (occurrence: SK)
  Receive Date: 20240618
  Receipt Date: 20240618
  Transmission Date: 20240715
  Serious: Yes (Other)
  Sender: FDA-Public Use
  Company Number: SK-ROCHE-3573757

PATIENT
  Age: 91 Year
  Sex: Female

DRUGS (4)
  1. RITUXIMAB [Suspect]
     Active Substance: RITUXIMAB
     Indication: Acquired haemophilia
     Dosage: 375 MG/M2, EVERY 7 DAYS, TOTALLY 4 DOSES
     Route: 042
     Dates: start: 20220802
  2. CYCLOPHOSPHAMIDE [Suspect]
     Active Substance: CYCLOPHOSPHAMIDE
     Indication: Acquired haemophilia
     Dosage: 2 MG/KG, 1X/DAY
     Route: 065
     Dates: start: 20220712, end: 20220905
  3. CYCLOSPORINE [Suspect]
     Active Substance: CYCLOSPORINE
     Dosage: 5 MG/KG, 1X/DAY (TITRATED TO 2 X250 MG)
     Dates: start: 20220927, end: 202302
  4. PREDNISONE [Concomitant]
     Active Substance: PREDNISONE
     Dosage: 1 MG/KG, 1X/DAY

REACTIONS (4)
  - Neutropenia [Unknown]
  - Renal failure [Unknown]
  - Urinary tract infection [Unknown]
  - Off label use [Unknown]
